FAERS Safety Report 15003955 (Version 3)
Quarter: 2018Q3

REPORT INFORMATION
  Report Type: Report from Study
  Country: None (occurrence: US)
  Receive Date: 20180613
  Receipt Date: 20180802
  Transmission Date: 20181010
  Serious: Yes (Hospitalization, Other)
  Sender: FDA-Public Use
  Company Number: US-ABBVIE-18K-163-2385621-00

PATIENT
  Age: 38 Year
  Sex: Female
  Weight: 74 kg

DRUGS (4)
  1. HYDROCHLOROTHIAZIDE. [Concomitant]
     Active Substance: HYDROCHLOROTHIAZIDE
     Indication: DIURETIC THERAPY
  2. VITAMIN D3 [Concomitant]
     Active Substance: CHOLECALCIFEROL
     Indication: HYPOVITAMINOSIS
  3. HUMIRA [Suspect]
     Active Substance: ADALIMUMAB
     Indication: ANKYLOSING SPONDYLITIS
     Route: 058
     Dates: start: 20180228, end: 2018
  4. HUMIRA [Suspect]
     Active Substance: ADALIMUMAB
     Indication: UVEITIS
     Route: 058
     Dates: start: 2018

REACTIONS (6)
  - Blindness transient [Recovered/Resolved]
  - Injection site pain [Recovered/Resolved]
  - Hemiplegic migraine [Recovering/Resolving]
  - Central nervous system lesion [Not Recovered/Not Resolved]
  - Blood cholesterol increased [Unknown]
  - Monoplegia [Recovering/Resolving]

NARRATIVE: CASE EVENT DATE: 20180609
